FAERS Safety Report 5196750-2 (Version None)
Quarter: 2006Q4

REPORT INFORMATION
  Report Type: 
  Country: None (occurrence: None)
  Receive Date: 20061229
  Receipt Date: 20061229
  Transmission Date: 20070319
  Serious: No
  Sender: FDA-Public Use
  Company Number: None

PATIENT
  Age: 41 Year
  Sex: Female
  Weight: 64 kg

DRUGS (1)
  1. LITHIUM CARBONATE [Suspect]
     Dosage: 1200 MG DAILY PO
     Route: 048

REACTIONS (2)
  - DRUG LEVEL INCREASED [None]
  - PSORIASIS [None]
